FAERS Safety Report 8058248-3 (Version None)
Quarter: 2012Q1

REPORT INFORMATION
  Report Type: 
  Country: None (occurrence: None)
  Receive Date: 20120120
  Receipt Date: 20120109
  Transmission Date: 20120608
  Serious: Yes (Other)
  Sender: FDA-Public Use
  Company Number: JP-TEVA-314357ISR

PATIENT
  Age: 5 Year

DRUGS (3)
  1. ETOPOSIDE [Suspect]
  2. IFOSFAMIDE [Suspect]
  3. CISPLATIN [Suspect]

REACTIONS (4)
  - BLOOD SODIUM DECREASED [None]
  - HEARING IMPAIRED [None]
  - PANCYTOPENIA [None]
  - LIVER FUNCTION TEST ABNORMAL [None]
